FAERS Safety Report 8943588 (Version 9)
Quarter: 2013Q4

REPORT INFORMATION
  Report Type: Spontaneous
  Country: US (occurrence: US)
  Receive Date: 20121203
  Receipt Date: 20131101
  Transmission Date: 20140711
  Serious: Yes (Hospitalization, Disabling, Other)
  Sender: FDA-Public Use
  Company Number: US-009507513-1211USA012889

PATIENT
  Sex: Female
  Weight: 65.79 kg

DRUGS (12)
  1. FOSAMAX [Suspect]
     Indication: OSTEOPENIA
     Dosage: 70 MG, QW
     Route: 048
     Dates: start: 20011220, end: 200803
  2. ALENDRONATE SODIUM [Suspect]
     Indication: OSTEOPENIA
     Dosage: 70 MG, UNK
     Dates: start: 200803, end: 200808
  3. ALLEGRA [Concomitant]
     Indication: HYPERSENSITIVITY
     Dosage: 60 MG DAILY PRN
     Dates: start: 20011220
  4. ALBUTEROL [Concomitant]
     Indication: ASTHMA
     Dosage: 90 MCG 2 PUFFS QID
     Route: 048
  5. ALBUTEROL [Concomitant]
     Indication: BRONCHIAL HYPERREACTIVITY
  6. HYDROCHLOROTHIAZIDE [Concomitant]
     Indication: HYPERTENSION
     Dosage: 25 MG, QD
  7. FLONASE [Concomitant]
     Indication: HYPERSENSITIVITY
     Dosage: 50 MCG AS DIRECTED
  8. CALCIUM (UNSPECIFIED) [Concomitant]
     Indication: OSTEOPENIA
  9. VITAMIN D (UNSPECIFIED) [Concomitant]
     Indication: OSTEOPENIA
  10. ENTEX LA (NEW FORMULA) [Concomitant]
     Dosage: UNK
     Dates: end: 20011220
  11. ATENOLOL [Concomitant]
     Indication: HYPERTENSION
     Dosage: 25 MG, QD
     Dates: start: 20011220
  12. PREMPRO [Concomitant]
     Dosage: 0.625/2.5

REACTIONS (33)
  - Internal fixation of fracture [Unknown]
  - Open reduction of fracture [Not Recovered/Not Resolved]
  - Femur fracture [Recovered/Resolved]
  - Closed fracture manipulation [Unknown]
  - Humerus fracture [Unknown]
  - Device breakage [Unknown]
  - Deafness [Recovered/Resolved]
  - Squamous cell carcinoma [Unknown]
  - Basal cell carcinoma [Unknown]
  - Surgery [Unknown]
  - Haematocrit decreased [Unknown]
  - Fracture nonunion [Unknown]
  - Femur fracture [Recovering/Resolving]
  - Low turnover osteopathy [Unknown]
  - Foot fracture [Unknown]
  - Herpes zoster [Unknown]
  - Foot fracture [Recovering/Resolving]
  - Hypertension [Unknown]
  - Vitamin D decreased [Unknown]
  - Raynaud^s phenomenon [Unknown]
  - Haematocrit decreased [Unknown]
  - Lactose intolerance [Unknown]
  - Muscular weakness [Unknown]
  - Muscular weakness [Unknown]
  - Vaginal haemorrhage [Unknown]
  - Tendonitis [Unknown]
  - Patellofemoral pain syndrome [Unknown]
  - Gastrointestinal disorder [Unknown]
  - Iliotibial band syndrome [Unknown]
  - Glycosylated haemoglobin increased [Unknown]
  - Arthralgia [Recovered/Resolved]
  - Nausea [Unknown]
  - Pain in extremity [Unknown]
